FAERS Safety Report 22106304 (Version 1)
Quarter: 2023Q1

REPORT INFORMATION
  Report Type: Spontaneous
  Country: US (occurrence: US)
  Receive Date: 20230317
  Receipt Date: 20230317
  Transmission Date: 20230418
  Serious: No
  Sender: FDA-Public Use
  Company Number: US-SA-SAC20230310001657

PATIENT
  Sex: Female
  Weight: 70.7 kg

DRUGS (1)
  1. DUPIXENT [Suspect]
     Active Substance: DUPILUMAB
     Indication: Dermatitis atopic
     Dosage: 300 MG EVERY 2 WEEKS
     Route: 065
     Dates: start: 201906

REACTIONS (3)
  - Rash [Unknown]
  - Pruritus [Unknown]
  - Dry skin [Unknown]
